FAERS Safety Report 17812575 (Version 1)
Quarter: 2020Q2

REPORT INFORMATION
  Report Type: Spontaneous
  Country: US (occurrence: US)
  Receive Date: 20200521
  Receipt Date: 20200521
  Transmission Date: 20200714
  Serious: Yes (Other)
  Sender: FDA-Public Use
  Company Number: US-PFIZER INC-2020196339

PATIENT
  Age: 47 Year
  Sex: Male

DRUGS (2)
  1. ZYVOX [Suspect]
     Active Substance: LINEZOLID
     Dosage: 600 MG, 2X/DAY
  2. ZYVOX [Suspect]
     Active Substance: LINEZOLID
     Dosage: 600 MG, 2X/DAY

REACTIONS (7)
  - Intervertebral discitis [Unknown]
  - C-reactive protein increased [Unknown]
  - Product prescribing issue [Unknown]
  - Extradural abscess [Unknown]
  - Bacteraemia [Unknown]
  - Osteomyelitis [Unknown]
  - Off label use [Unknown]
